FAERS Safety Report 5403234-2 (Version None)
Quarter: 2007Q3

REPORT INFORMATION
  Report Type: 
  Country: None (occurrence: None)
  Receive Date: 20070801
  Receipt Date: 20070720
  Transmission Date: 20080115
  Serious: No
  Sender: FDA-Public Use
  Company Number: GB-PFIZER INC-2007050045

PATIENT
  Sex: Male

DRUGS (1)
  1. CHAMPIX [Suspect]
     Indication: SMOKING CESSATION THERAPY
     Route: 048

REACTIONS (2)
  - HYPOAESTHESIA FACIAL [None]
  - PARAESTHESIA [None]
